FAERS Safety Report 16108707 (Version 2)
Quarter: 2019Q3

REPORT INFORMATION
  Report Type: Report from Study
  Country: US (occurrence: US)
  Receive Date: 20190323
  Receipt Date: 20190703
  Transmission Date: 20191004
  Serious: No
  Sender: FDA-Public Use
  Company Number: US-009507513-1903USA008159

PATIENT
  Sex: Male

DRUGS (1)
  1. ZETIA [Suspect]
     Active Substance: EZETIMIBE
     Indication: BLOOD CHOLESTEROL DECREASED
     Dosage: 10 MILLIGRAM, QD
     Route: 048
     Dates: start: 2016, end: 2019

REACTIONS (3)
  - Product dose omission [Unknown]
  - Economic problem [Not Recovered/Not Resolved]
  - Blood cholesterol increased [Not Recovered/Not Resolved]

NARRATIVE: CASE EVENT DATE: 2019
